FAERS Safety Report 8796911 (Version 1)
Quarter: 2012Q4

REPORT INFORMATION
  Report Type: 
  Country: US (occurrence: US)
  Receive Date: 20120920
  Receipt Date: 20120920
  Transmission Date: 20130627
  Serious: Yes (Other)
  Sender: FDA-Public Use
  Company Number: PHEH2011US009529

PATIENT
  Sex: Male

DRUGS (14)
  1. GLEEVEC [Suspect]
     Indication: MALIGNANT SOFT TISSUE NEOPLASM
     Dosage: 400 mg, daily
     Route: 048
     Dates: start: 20110928
  2. GLEEVEC [Suspect]
     Indication: GASTROINTESTINAL STROMAL TUMOUR
  3. RITUXAN [Concomitant]
     Dosage: 730 mg, UNK
     Dates: start: 20120301
  4. CLEOCIN [Concomitant]
     Dosage: 300 mg, UNK
  5. BACTRIM DS [Concomitant]
     Dosage: 1 DF, QW3
  6. NEURONTIN [Concomitant]
     Dosage: 1 DF, TID
     Route: 048
  7. ALDACTAZIDE [Concomitant]
     Dosage: 1 DF, QW3
     Route: 048
  8. TOPROL XL [Concomitant]
     Dosage: 1 DF, daily
     Route: 048
  9. PROTONIX ^PHARMACIA^ [Concomitant]
     Dosage: 1 DF, daily
     Route: 048
  10. PLAVIX [Concomitant]
     Dosage: 1 DF, every day
     Route: 048
  11. FOLIC ACID [Concomitant]
     Dosage: 1 DF, daily
     Route: 048
  12. IMDUR [Concomitant]
     Dosage: 1 DF, every day
     Route: 048
  13. ASPIRIN [Concomitant]
     Dosage: 1 DF, daily
  14. LIPITOR [Concomitant]
     Dosage: 1 DF, daily

REACTIONS (9)
  - Lymphadenopathy [Unknown]
  - Aortic aneurysm [Unknown]
  - Blood creatinine increased [Unknown]
  - Ageusia [Not Recovered/Not Resolved]
  - Anaemia [Unknown]
  - Protein total decreased [Unknown]
  - Globulins decreased [Unknown]
  - Albumin globulin ratio abnormal [Unknown]
  - Diarrhoea [None]
